FAERS Safety Report 15102674 (Version 2)
Quarter: 2018Q4

REPORT INFORMATION
  Report Type: Report from Study
  Country: US (occurrence: US)
  Receive Date: 20180703
  Receipt Date: 20181026
  Transmission Date: 20190204
  Serious: No
  Sender: FDA-Public Use
  Company Number: US-SA-2018SA170422

PATIENT
  Age: 64 Year
  Sex: Female

DRUGS (2)
  1. INSULIN GLARGINE/LIXISENATIDE [Suspect]
     Active Substance: INSULIN GLARGINE\LIXISENATIDE
     Dosage: 20 U
     Route: 051
     Dates: start: 20180501
  2. INSULIN GLARGINE/LIXISENATIDE [Suspect]
     Active Substance: INSULIN GLARGINE\LIXISENATIDE
     Dosage: 15 U, QD

REACTIONS (9)
  - Injection site pain [Unknown]
  - Intentional dose omission [Unknown]
  - Thyroid disorder [Unknown]
  - Contusion [Unknown]
  - Feeling abnormal [Unknown]
  - Drug ineffective [Unknown]
  - Weight increased [Unknown]
  - Thermal burn [Unknown]
  - Fatigue [Unknown]

NARRATIVE: CASE EVENT DATE: 20180823
